FAERS Safety Report 19141870 (Version 1)
Quarter: 2021Q2

REPORT INFORMATION
  Report Type: Spontaneous
  Country: US (occurrence: US)
  Receive Date: 20210415
  Receipt Date: 20210415
  Transmission Date: 20210717
  Serious: Yes (Other)
  Sender: FDA-Public Use
  Company Number: US-RVL_PHARMACEUTICALS-USA-POI0573202100135

PATIENT
  Age: 73 Year
  Sex: Female
  Weight: 45.4 kg

DRUGS (1)
  1. UPNEEQ [Suspect]
     Active Substance: OXYMETAZOLINE HYDROCHLORIDE
     Indication: EYELID PTOSIS
     Dosage: OU
     Route: 047
     Dates: start: 20210330, end: 20210330

REACTIONS (3)
  - Vitreous detachment [Unknown]
  - Hypotension [Unknown]
  - Vision blurred [Unknown]

NARRATIVE: CASE EVENT DATE: 20210330
